FAERS Safety Report 11837806 (Version 1)
Quarter: 2015Q4

REPORT INFORMATION
  Report Type: Spontaneous
  Country: TR (occurrence: TR)
  Receive Date: 20151215
  Receipt Date: 20151215
  Transmission Date: 20160305
  Serious: Yes (Hospitalization)
  Sender: FDA-Public Use
  Company Number: PHHY2015TR160755

PATIENT
  Age: 46 Year
  Sex: Female

DRUGS (2)
  1. PYRIDOSTIGMINE [Suspect]
     Active Substance: PYRIDOSTIGMINE
     Indication: MYASTHENIA GRAVIS
     Dosage: 180 MG, QD
     Route: 065
  2. DEFLAZACORTE [Suspect]
     Active Substance: DEFLAZACORT
     Indication: MYASTHENIA GRAVIS
     Dosage: 30 MG, QD
     Route: 065

REACTIONS (1)
  - Kaposi^s sarcoma [Unknown]
